FAERS Safety Report 20991049 (Version 2)
Quarter: 2025Q3

REPORT INFORMATION
  Report Type: Report from Study
  Country: EU (occurrence: EU)
  Receive Date: 20220622
  Receipt Date: 20250707
  Transmission Date: 20251020
  Serious: Yes (Other)
  Sender: TEVA
  Company Number: EU-CELGENE-FRA-20220107732

PATIENT
  Age: 55 Year
  Sex: Male
  Weight: 95 kg

DRUGS (3)
  1. FLUDARABINE [Suspect]
     Active Substance: FLUDARABINE PHOSPHATE
     Indication: Plasma cell myeloma
     Dosage: DURATION: 2 DAYS
     Route: 042
     Dates: start: 20211008, end: 20211010
  2. ABECMA [Suspect]
     Active Substance: IDECABTAGENE VICLEUCEL
     Indication: Plasma cell myeloma
     Route: 041
     Dates: start: 20211013, end: 20211013
  3. CYCLOPHOSPHAMIDE [Suspect]
     Active Substance: CYCLOPHOSPHAMIDE
     Indication: Plasma cell myeloma
     Dosage: DURATION: 2 DAYS
     Route: 042
     Dates: start: 20211008, end: 20211010

REACTIONS (4)
  - Cytopenia [Unknown]
  - Cytokine release syndrome [Recovered/Resolved]
  - Neutropenia [Recovered/Resolved]
  - Hypogammaglobulinaemia [Not Recovered/Not Resolved]

NARRATIVE: CASE EVENT DATE: 20211012
